FAERS Safety Report 7367347-0 (Version None)
Quarter: 2011Q1

REPORT INFORMATION
  Report Type: 
  Country: None (occurrence: None)
  Receive Date: 20110322
  Receipt Date: 20110322
  Transmission Date: 20110831
  Serious: Yes (Hospitalization, Disabling, Other)
  Sender: FDA-Public Use
  Company Number: None

PATIENT
  Age: 52 Year
  Sex: Female
  Weight: 86.1834 kg

DRUGS (2)
  1. ALCOHOL PADS N/A TRIAD [Suspect]
     Indication: STERILISATION
     Dosage: DAILY
     Dates: start: 20100201, end: 20101129
  2. COPAXONE [Concomitant]

REACTIONS (3)
  - PRODUCT QUALITY ISSUE [None]
  - PSORIASIS [None]
  - SKIN REACTION [None]
